FAERS Safety Report 13586686 (Version 1)
Quarter: 2017Q2

REPORT INFORMATION
  Report Type: Spontaneous
  Country: BR (occurrence: BR)
  Receive Date: 20170526
  Receipt Date: 20170526
  Transmission Date: 20170830
  Serious: Yes (Death, Hospitalization)
  Sender: FDA-Public Use
  Company Number: PHHY2017BR076943

PATIENT
  Age: 39 Year
  Sex: Male

DRUGS (4)
  1. CICLOSPORIN [Suspect]
     Active Substance: CYCLOSPORINE
     Indication: IMMUNOSUPPRESSANT DRUG THERAPY
  2. CICLOSPORIN [Suspect]
     Active Substance: CYCLOSPORINE
     Indication: LIVER TRANSPLANT
     Dosage: 75 MG, BID
     Route: 065
  3. AZATHIOPRINE. [Suspect]
     Active Substance: AZATHIOPRINE
     Indication: IMMUNOSUPPRESSANT DRUG THERAPY
  4. AZATHIOPRINE. [Suspect]
     Active Substance: AZATHIOPRINE
     Indication: LIVER TRANSPLANT
     Dosage: 50 MG, QD
     Route: 065

REACTIONS (8)
  - Weight decreased [Fatal]
  - Adenocarcinoma of colon [Fatal]
  - Fatigue [Fatal]
  - Acute kidney injury [Fatal]
  - Intestinal mass [Fatal]
  - Metastases to liver [Fatal]
  - Confusional state [Fatal]
  - Hepatic failure [Fatal]

NARRATIVE: CASE EVENT DATE: 201509
